FAERS Safety Report 7922190-6 (Version None)
Quarter: 2011Q4

REPORT INFORMATION
  Report Type: 
  Country: None (occurrence: None)
  Receive Date: 20111117
  Receipt Date: 20110201
  Transmission Date: 20120403
  Serious: No
  Sender: FDA-Public Use
  Company Number: US-AMGEN-USASP2011001403

PATIENT
  Age: 50 Year
  Sex: Female

DRUGS (12)
  1. PREDNISONE [Concomitant]
     Dosage: 1 MG, UNK
  2. MILNACIPRAN [Concomitant]
     Dosage: 25 MG, UNK
  3. METHOTREXATE [Concomitant]
     Dosage: 2.5 MG, UNK
  4. HYDROXYCHLOROQUINE SULFATE [Concomitant]
     Dosage: 200 MG, UNK
  5. VITAMIN B                          /00056102/ [Concomitant]
     Dosage: UNK
  6. ENBREL [Suspect]
     Indication: RHEUMATOID ARTHRITIS
     Dates: start: 20110104
  7. FOLIC ACID [Concomitant]
     Dosage: 1 MG, UNK
  8. METHOCARBAMOL [Concomitant]
     Dosage: 500 MG, UNK
  9. PILOCARPINE HYDROCHLORIDE [Concomitant]
     Dosage: 5 MG, UNK
  10. VITAMIN D [Concomitant]
     Dosage: 50000 UNIT, UNK
  11. SUMATRIPTAN [Concomitant]
     Dosage: 25 MG, UNK
  12. PREMPRO [Concomitant]

REACTIONS (4)
  - INFLUENZA LIKE ILLNESS [None]
  - FATIGUE [None]
  - HEADACHE [None]
  - ABDOMINAL PAIN UPPER [None]
